FAERS Safety Report 10334908 (Version 2)
Quarter: 2015Q2

REPORT INFORMATION
  Report Type: Spontaneous
  Country: IT (occurrence: IT)
  Receive Date: 20140723
  Receipt Date: 20150528
  Transmission Date: 20150821
  Serious: Yes (Hospitalization, Other)
  Sender: FDA-Public Use
  Company Number: IT-TEVA-495371ISR

PATIENT
  Age: 57 Year
  Sex: Male

DRUGS (3)
  1. AMIODARONE [Interacting]
     Active Substance: AMIODARONE
     Indication: ATRIAL FIBRILLATION
  2. EVEROLIMUS [Interacting]
     Active Substance: EVEROLIMUS
     Indication: RENAL TRANSPLANT
     Dosage: 1.75 MILLIGRAM DAILY; EVEROLIMUS WAS NOT DISCONTINUED.
     Route: 065
  3. AMIODARONE [Suspect]
     Active Substance: AMIODARONE
     Indication: RENAL TRANSPLANT
     Dosage: 600 MG/DAY FOLLOWED BY 200 MG/DAY MAINTENANCE DOSE
     Route: 065
     Dates: start: 201110

REACTIONS (7)
  - Renal impairment [Unknown]
  - Drug interaction [Recovered/Resolved]
  - Malaise [Unknown]
  - Pyrexia [Unknown]
  - Interstitial lung disease [Recovered/Resolved]
  - Pulmonary toxicity [Recovered/Resolved]
  - Dyspnoea [Unknown]

NARRATIVE: CASE EVENT DATE: 201112
